FAERS Safety Report 13276505 (Version 2)
Quarter: 2017Q1

REPORT INFORMATION
  Report Type: Spontaneous
  Country: GB (occurrence: GB)
  Receive Date: 20170228
  Receipt Date: 20170328
  Transmission Date: 20170428
  Serious: Yes (Hospitalization, Other)
  Sender: FDA-Public Use
  Company Number: GB-AUROBINDO-AUR-APL-2017-00177

PATIENT
  Age: 53 Year
  Sex: Female

DRUGS (9)
  1. PARACETAMOL [Suspect]
     Active Substance: ACETAMINOPHEN
     Indication: ENDOCARDITIS
     Dosage: 1 G, FOUR TIMES/DAY
     Route: 065
  2. RIFAMPICIN [Concomitant]
     Active Substance: RIFAMPIN
     Indication: TOOTH ABSCESS
  3. PARACETAMOL [Suspect]
     Active Substance: ACETAMINOPHEN
     Indication: TOOTH ABSCESS
  4. FLUCLOXACILLIN [Suspect]
     Active Substance: FLUCLOXACILLIN
     Indication: ENDOCARDITIS
  5. BECLOMETASONA + SALBUTAMOL [Concomitant]
     Indication: PRODUCT USED FOR UNKNOWN INDICATION
     Dosage: UNK
     Route: 055
  6. CANDESARTAN [Concomitant]
     Active Substance: CANDESARTAN
     Indication: PRODUCT USED FOR UNKNOWN INDICATION
     Dosage: UNK
     Route: 048
  7. AMITRIPTYLINE [Concomitant]
     Active Substance: AMITRIPTYLINE
     Indication: PRODUCT USED FOR UNKNOWN INDICATION
     Dosage: UNK
     Route: 065
  8. FLUCLOXACILLIN [Suspect]
     Active Substance: FLUCLOXACILLIN
     Indication: TOOTH ABSCESS
     Dosage: UNK
     Route: 042
  9. RIFAMPICIN [Concomitant]
     Active Substance: RIFAMPIN
     Indication: ENDOCARDITIS

REACTIONS (1)
  - Metabolic acidosis [Recovered/Resolved]
